FAERS Safety Report 4397271-7 (Version None)
Quarter: 2004Q3

REPORT INFORMATION
  Report Type: 
  Country: None (occurrence: None)
  Receive Date: 20040708
  Receipt Date: 20040623
  Transmission Date: 20050211
  Serious: Yes (Hospitalization)
  Sender: FDA-Public Use
  Company Number: 2004SE03621

PATIENT
  Sex: Male

DRUGS (6)
  1. ATACAND [Suspect]
     Indication: HYPERTENSION
     Dosage: 16 MG DAILY PO
     Route: 048
  2. ATACAND [Suspect]
     Indication: HYPERTENSION
     Dosage: 8 MG DAILY
  3. SOTALOL HCL [Concomitant]
  4. AMLOR [Concomitant]
  5. LIPITOR [Concomitant]
  6. ALLOPURINOL [Concomitant]

REACTIONS (6)
  - DIALYSIS [None]
  - FATIGUE [None]
  - GLOMERULAR VASCULAR DISORDER [None]
  - HAEMATURIA [None]
  - IMMUNE SYSTEM DISORDER [None]
  - RENAL FAILURE ACUTE [None]
